FAERS Safety Report 7312758-2 (Version None)
Quarter: 2011Q1

REPORT INFORMATION
  Report Type: 
  Country: None (occurrence: None)
  Receive Date: 20110224
  Receipt Date: 20110210
  Transmission Date: 20110831
  Serious: Yes (Life-Threatening, Hospitalization, Other)
  Sender: FDA-Public Use
  Company Number: FR-GENENTECH-311971

PATIENT
  Sex: Female
  Weight: 70 kg

DRUGS (8)
  1. POLARAMINE [Concomitant]
     Indication: PRODUCT USED FOR UNKNOWN INDICATION
  2. TELFAST (AUSTRALIA) [Concomitant]
     Indication: PRODUCT USED FOR UNKNOWN INDICATION
     Dosage: 180 MG, UNK
     Dates: start: 20090101
  3. ADRENALINE [Suspect]
     Indication: PRODUCT USED FOR UNKNOWN INDICATION
  4. XYZAL [Concomitant]
     Indication: PRODUCT USED FOR UNKNOWN INDICATION
     Dosage: UNK
     Dates: start: 20090101
  5. XOLAIR [Suspect]
     Indication: ASTHMA
     Dosage: 225 MG, UNK
     Dates: start: 20090701
  6. XOLAIR [Suspect]
     Dosage: UNK
     Dates: start: 20100913, end: 20101227
  7. VENTOLIN [Concomitant]
     Indication: PRODUCT USED FOR UNKNOWN INDICATION
  8. PROZAC [Concomitant]
     Indication: PRODUCT USED FOR UNKNOWN INDICATION

REACTIONS (9)
  - PARAESTHESIA [None]
  - OROPHARYNGEAL DISCOMFORT [None]
  - PAIN IN EXTREMITY [None]
  - ARTHRALGIA [None]
  - ASTHENIA [None]
  - MUSCULOSKELETAL PAIN [None]
  - ERYTHEMA [None]
  - VENTRICULAR TACHYCARDIA [None]
  - ANAPHYLACTIC SHOCK [None]
